FAERS Safety Report 11623582 (Version 1)
Quarter: 2015Q4

REPORT INFORMATION
  Report Type: Spontaneous
  Country: US (occurrence: US)
  Receive Date: 20151013
  Receipt Date: 20151013
  Transmission Date: 20160304
  Serious: No
  Sender: FDA-Public Use
  Company Number: US-JNJFOC-20150111572

PATIENT
  Age: 15 Month
  Sex: Female
  Weight: 9.98 kg

DRUGS (1)
  1. CHILDRENS TYLENOL [Suspect]
     Active Substance: ACETAMINOPHEN
     Indication: MEDICATION ERROR
     Dosage: 3ML BY FATHER AND 3.75ML BY MOTHER
     Route: 048
     Dates: start: 20140331

REACTIONS (1)
  - Accidental exposure to product [Unknown]
